FAERS Safety Report 8801378 (Version 3)
Quarter: 2012Q4

REPORT INFORMATION
  Report Type: 
  Country: CA (occurrence: CA)
  Receive Date: 20120921
  Receipt Date: 20121018
  Transmission Date: 20130627
  Serious: Yes (Hospitalization, Other)
  Sender: FDA-Public Use
  Company Number: CA-AMGEN-CANSP2012053712

PATIENT
  Age: 86 Year
  Sex: Female

DRUGS (2)
  1. NPLATE [Suspect]
     Indication: IDIOPATHIC THROMBOCYTOPENIC PURPURA
     Dosage: 100 mug, qwk
     Route: 058
     Dates: start: 201007, end: 201104
  2. NPLATE [Suspect]
     Dosage: 420 mug, qwk
     Route: 042
     Dates: start: 201104, end: 20120415

REACTIONS (9)
  - Myelodysplastic syndrome [Unknown]
  - Therapeutic response decreased [Unknown]
  - Cardiac failure congestive [Unknown]
  - Dyspnoea [Unknown]
  - Platelet count decreased [Unknown]
  - Splenomegaly [Unknown]
  - Fatigue [Unknown]
  - Headache [Unknown]
  - Asthenia [Unknown]
